FAERS Safety Report 8502150-7 (Version None)
Quarter: 2012Q3

REPORT INFORMATION
  Report Type: 
  Country: None (occurrence: None)
  Receive Date: 20120711
  Receipt Date: 20120709
  Transmission Date: 20120928
  Serious: Yes (Hospitalization, Other)
  Sender: FDA-Public Use
  Company Number: US-BAYER-2012-020561

PATIENT
  Age: 48 Year
  Sex: Female

DRUGS (5)
  1. BETASERON [Suspect]
     Dosage: UNK
     Dates: start: 20090203, end: 20091226
  2. VITAMIN B-12 [Concomitant]
     Indication: VITAMIN B12 DEFICIENCY
  3. BETASERON [Suspect]
     Indication: MULTIPLE SCLEROSIS
     Dosage: UNK
     Dates: start: 20081103, end: 20090105
  4. FOLIC ACID [Concomitant]
     Indication: METHYLENETETRAHYDROFOLATE REDUCTASE POLYMORPHISM
  5. BETASERON [Suspect]
     Dosage: UNK
     Dates: start: 20100928, end: 20111201

REACTIONS (6)
  - TINNITUS [None]
  - THYROID CANCER [None]
  - DIZZINESS [None]
  - VERTIGO [None]
  - PARAESTHESIA [None]
  - HEADACHE [None]
